FAERS Safety Report 5771412-9 (Version None)
Quarter: 2008Q2

REPORT INFORMATION
  Report Type: 
  Country: None (occurrence: None)
  Receive Date: 20080610
  Receipt Date: 20080527
  Transmission Date: 20081010
  Serious: Yes (Hospitalization)
  Sender: FDA-Public Use
  Company Number: 2008AL005917

PATIENT
  Age: 85 Year
  Sex: Male

DRUGS (3)
  1. DIGOXIN [Suspect]
     Dosage: .125MG DAILY PO
     Route: 048
  2. CARDIZEM [Concomitant]
  3. CIPRO [Concomitant]

REACTIONS (8)
  - ATRIAL FIBRILLATION [None]
  - CHEST PAIN [None]
  - CYSTITIS [None]
  - HEART RATE DECREASED [None]
  - HYPOTENSION [None]
  - MUSCLE SPASMS [None]
  - RENAL FAILURE ACUTE [None]
  - URINARY RETENTION [None]
